FAERS Safety Report 6742310-9 (Version None)
Quarter: 2010Q2

REPORT INFORMATION
  Report Type: 
  Country: None (occurrence: None)
  Receive Date: 20100524
  Receipt Date: 20100510
  Transmission Date: 20101027
  Serious: No
  Sender: FDA-Public Use
  Company Number: RENA-1000613

PATIENT
  Age: 70 Year
  Sex: Male

DRUGS (15)
  1. RENAGEL [Suspect]
     Indication: HYPERPHOSPHATAEMIA
     Dosage: 0.8 G, TID, ORAL
     Route: 048
     Dates: start: 20090106, end: 20090114
  2. LEVOTHYROXINE SODIUM [Suspect]
     Indication: THYROIDECTOMY
     Dosage: 50 50 MCG PER DAY, ORAL; 100 MCG, QD,; 50 MCG, QD,
     Route: 048
     Dates: start: 20080825, end: 20090327
  3. LEVOTHYROXINE SODIUM [Suspect]
     Indication: THYROIDECTOMY
     Dosage: 50 50 MCG PER DAY, ORAL; 100 MCG, QD,; 50 MCG, QD,
     Route: 048
     Dates: start: 20090328, end: 20090507
  4. LEVOTHYROXINE SODIUM [Suspect]
     Indication: THYROIDECTOMY
     Dosage: 50 50 MCG PER DAY, ORAL; 100 MCG, QD,; 50 MCG, QD,
     Route: 048
     Dates: start: 20090507, end: 20090706
  5. LEVOTHYROXINE SODIUM [Suspect]
     Indication: THYROIDECTOMY
     Dosage: 50 50 MCG PER DAY, ORAL; 100 MCG, QD,; 50 MCG, QD,
     Route: 048
     Dates: start: 20030101
  6. OSVAREN (CALCIUM ACETATE AND MAGNESIUM CARBONATE) TABLET [Suspect]
     Indication: DRUG USE FOR UNKNOWN INDICATION
     Dosage: 435 MG + 235 MG, 1 PIECE TID, ORAL
     Route: 048
     Dates: start: 20090506, end: 20090826
  7. OYSTER SHELL CALCIUM (CALCIUM CARBONATE) UNKNOWN [Suspect]
     Indication: DRUG USE FOR UNKNOWN INDICATION
     Dosage: 1500 MG + 1000 MG + 1500 MG,
     Dates: start: 20080825, end: 20090105
  8. PHOSPHATE BINDER [Concomitant]
  9. VITAMIN B COMPLEX (VITAMIN-B-KOMPLEX STANDARD) UNKNOWN [Concomitant]
  10. MICARDIS [Concomitant]
  11. SELO-ZOK (METOPROLOL SUCCINATE) PROLONGED-RELEASE TABLET [Concomitant]
  12. VENOFER (SACCHARATED IRON OXIDE) SOLUTION FOR INJECTION [Concomitant]
  13. FOLINSYRE (FOLIC ACID) TABLET [Concomitant]
  14. INNOHEP (TINZAPARIN SODIUM) SOLUTION FOR INJECTION [Concomitant]
  15. FOSRENOL [Concomitant]

REACTIONS (5)
  - AZOTAEMIA [None]
  - BLOOD THYROID STIMULATING HORMONE INCREASED [None]
  - DRUG INTERACTION [None]
  - THYROXINE DECREASED [None]
  - TRI-IODOTHYRONINE DECREASED [None]
